FAERS Safety Report 20692971 (Version 1)
Quarter: 2022Q2

REPORT INFORMATION
  Report Type: Spontaneous
  Country: US (occurrence: US)
  Receive Date: 20220410
  Receipt Date: 20220410
  Transmission Date: 20220721
  Serious: Yes (Life-Threatening)
  Sender: FDA-Public Use
  Company Number: US-NEBO-PC008249

PATIENT
  Age: 38 Year
  Sex: Female
  Weight: 62.4 kg

DRUGS (1)
  1. MONOFERRIC [Suspect]
     Active Substance: FERRIC DERISOMALTOSE
     Indication: Iron deficiency anaemia
     Route: 042
     Dates: start: 20210920, end: 20210920

REACTIONS (6)
  - Dyspnoea [Recovered/Resolved]
  - Angioedema [Recovered/Resolved]
  - Unresponsive to stimuli [Recovered/Resolved]
  - Abdominal pain [Recovered/Resolved]
  - Nausea [Recovered/Resolved]
  - Flushing [Recovered/Resolved]

NARRATIVE: CASE EVENT DATE: 20210920
